FAERS Safety Report 11400383 (Version 3)
Quarter: 2016Q1

REPORT INFORMATION
  Report Type: Spontaneous
  Country: US (occurrence: US)
  Receive Date: 20150820
  Receipt Date: 20160216
  Transmission Date: 20160525
  Serious: No
  Sender: FDA-Public Use
  Company Number: US-PFIZER INC-2015263688

PATIENT
  Age: 74 Year
  Sex: Male
  Weight: 119 kg

DRUGS (7)
  1. SUTENT [Suspect]
     Active Substance: SUNITINIB MALATE
     Indication: METASTATIC RENAL CELL CARCINOMA
     Dosage: 50 MG, CYCLIC (28 DAYS ON/ 14 DAYS OFF)
     Route: 048
     Dates: start: 20150730
  2. LOPRESSOR [Concomitant]
     Active Substance: METOPROLOL TARTRATE
     Indication: BLOOD PRESSURE ABNORMAL
     Dosage: 50 MG, 1X/DAY
  3. NORVASC [Concomitant]
     Active Substance: AMLODIPINE BESYLATE
     Indication: BLOOD PRESSURE ABNORMAL
     Dosage: 10 MG, 1X/DAY
  4. SUTENT [Suspect]
     Active Substance: SUNITINIB MALATE
     Dosage: 50 MG, CYCLIC (2 WEEKS ON/ 1 WEEK OFF)
     Route: 048
     Dates: start: 20151201
  5. SUTENT [Suspect]
     Active Substance: SUNITINIB MALATE
     Dosage: 37.5 MG, CYCLIC (14 DAYS)
  6. PREDNISONE. [Suspect]
     Active Substance: PREDNISONE
     Indication: GOUT
     Dosage: 4 MG, AS NEEDED
  7. ALLOPURINOL. [Suspect]
     Active Substance: ALLOPURINOL
     Indication: GOUT
     Dosage: 100 MG, 1X/DAY

REACTIONS (20)
  - Oral mucosal exfoliation [Unknown]
  - Platelet count decreased [Unknown]
  - Gout [Unknown]
  - Sinus disorder [Unknown]
  - Hyperhidrosis [Not Recovered/Not Resolved]
  - Diarrhoea [Recovered/Resolved]
  - Mental fatigue [Not Recovered/Not Resolved]
  - Gastric pH decreased [Recovered/Resolved]
  - Ageusia [Unknown]
  - Gingival pain [Not Recovered/Not Resolved]
  - Dizziness [Not Recovered/Not Resolved]
  - Dyspepsia [Unknown]
  - Asthenia [Not Recovered/Not Resolved]
  - Pain [Unknown]
  - Decreased appetite [Not Recovered/Not Resolved]
  - Abdominal pain upper [Unknown]
  - Constipation [Recovered/Resolved]
  - Weight decreased [Not Recovered/Not Resolved]
  - Fatigue [Unknown]
  - Weight increased [Unknown]

NARRATIVE: CASE EVENT DATE: 201508
